FAERS Safety Report 5788478-2 (Version None)
Quarter: 2008Q2

REPORT INFORMATION
  Report Type: 
  Country: None (occurrence: None)
  Receive Date: 20080625
  Receipt Date: 20080625
  Transmission Date: 20081010
  Serious: No
  Sender: FDA-Public Use
  Company Number: None

PATIENT
  Age: 31 Year
  Sex: Female
  Weight: 78.0187 kg

DRUGS (1)
  1. MIRENA [Suspect]
     Indication: CONTRACEPTION
     Dates: start: 20071129, end: 20080415

REACTIONS (8)
  - ALOPECIA [None]
  - AMENORRHOEA [None]
  - HEADACHE [None]
  - MOOD ALTERED [None]
  - MUSCLE SPASMS [None]
  - PAIN [None]
  - SALPINGITIS [None]
  - WEIGHT INCREASED [None]
